FAERS Safety Report 11650545 (Version 2)
Quarter: 2016Q1

REPORT INFORMATION
  Report Type: Report from Study
  Country: CA (occurrence: CA)
  Receive Date: 20151021
  Receipt Date: 20160314
  Transmission Date: 20160525
  Serious: Yes (Hospitalization, Other)
  Sender: FDA-Public Use
  Company Number: PHHY2015CA125522

PATIENT
  Age: 73 Year
  Sex: Male

DRUGS (2)
  1. GLEEVEC [Suspect]
     Active Substance: IMATINIB MESYLATE
     Indication: GASTROINTESTINAL STROMAL TUMOUR
     Dosage: UNK
     Route: 048
     Dates: start: 200602, end: 201403
  2. GLEEVEC [Suspect]
     Active Substance: IMATINIB MESYLATE
     Dosage: 400 MG, QD
     Route: 048

REACTIONS (6)
  - Cyanosis [Unknown]
  - Headache [Unknown]
  - Hepatic neoplasm [Unknown]
  - Treatment failure [Unknown]
  - Thrombosis [Unknown]
  - Renal failure [Unknown]

NARRATIVE: CASE EVENT DATE: 201601
